FAERS Safety Report 18813653 (Version 1)
Quarter: 2021Q1

REPORT INFORMATION
  Report Type: Spontaneous
  Country: US (occurrence: US)
  Receive Date: 20210201
  Receipt Date: 20210201
  Transmission Date: 20210419
  Serious: No
  Sender: FDA-Public Use
  Company Number: US-APOTEX-2021AP002050

PATIENT
  Sex: Female

DRUGS (2)
  1. PAXIL [Suspect]
     Active Substance: PAROXETINE HYDROCHLORIDE
     Indication: PRODUCT USED FOR UNKNOWN INDICATION
     Dosage: 60 MILLIGRAM
     Route: 065
     Dates: end: 201401
  2. PAXIL [Suspect]
     Active Substance: PAROXETINE HYDROCHLORIDE
     Dosage: 6.4 MILLIGRAM
     Route: 065
     Dates: start: 201401

REACTIONS (4)
  - Akathisia [Unknown]
  - Sexual dysfunction [Unknown]
  - Withdrawal syndrome [Unknown]
  - Emotional disorder [Unknown]
